FAERS Safety Report 13300791 (Version 1)
Quarter: 2017Q1

REPORT INFORMATION
  Report Type: Spontaneous
  Country: US (occurrence: US)
  Receive Date: 20170306
  Receipt Date: 20170306
  Transmission Date: 20170428
  Serious: Yes (Other)
  Sender: FDA-Public Use
  Company Number: None

PATIENT
  Age: 84 Year
  Sex: Male
  Weight: 73.35 kg

DRUGS (7)
  1. DRISTAN NAZAL SPRAY [Concomitant]
  2. OTEZLA [Suspect]
     Active Substance: APREMILAST
     Indication: PRODUCT USED FOR UNKNOWN INDICATION
     Dosage: ?          QUANTITY:60 TABLET(S);?
     Route: 048
     Dates: start: 20161101, end: 20170210
  3. PREDNISONE. [Concomitant]
     Active Substance: PREDNISONE
  4. TRAVATAN [Concomitant]
     Active Substance: TRAVOPROST
  5. LISINOPRIL. [Concomitant]
     Active Substance: LISINOPRIL
  6. VITAMIN D [Concomitant]
     Active Substance: CHOLECALCIFEROL
  7. AZOPT [Concomitant]
     Active Substance: BRINZOLAMIDE

REACTIONS (9)
  - Pulmonary congestion [None]
  - Hair disorder [None]
  - Abscess [None]
  - Rhinorrhoea [None]
  - Scab [None]
  - Diarrhoea [None]
  - Asthenia [None]
  - Oropharyngeal pain [None]
  - Pruritus [None]

NARRATIVE: CASE EVENT DATE: 20170111
